FAERS Safety Report 15835359 (Version 1)
Quarter: 2019Q1

REPORT INFORMATION
  Report Type: Report from Study
  Country: None (occurrence: BR)
  Receive Date: 20190117
  Receipt Date: 20190117
  Transmission Date: 20190417
  Serious: Yes (Other)
  Sender: FDA-Public Use
  Company Number: BR-ABBVIE-19K-020-2622712-00

PATIENT
  Age: 29 Year
  Sex: Female
  Weight: 80 kg

DRUGS (12)
  1. HUMIRA [Suspect]
     Active Substance: ADALIMUMAB
     Indication: ANKYLOSING SPONDYLITIS
     Route: 058
     Dates: start: 20181101
  2. VIMOVO [Concomitant]
     Active Substance: ESOMEPRAZOLE MAGNESIUM\NAPROXEN
     Indication: ARTHRALGIA
  3. MESACOL [Concomitant]
     Active Substance: MESALAMINE
     Indication: PRODUCT USED FOR UNKNOWN INDICATION
  4. IMOSEC [Concomitant]
     Active Substance: LOPERAMIDE
     Indication: DEFAECATION DISORDER
  5. PRED MILD [Concomitant]
     Active Substance: PREDNISOLONE ACETATE
     Indication: PRODUCT USED FOR UNKNOWN INDICATION
  6. SULFASALAZINE. [Concomitant]
     Active Substance: SULFASALAZINE
     Indication: PRODUCT USED FOR UNKNOWN INDICATION
  7. PRED FORT [Concomitant]
     Active Substance: PREDNISOLONE ACETATE
     Indication: PAIN
  8. GONAL-F [Concomitant]
     Active Substance: FOLLITROPIN
     Indication: NAUSEA
     Route: 060
  9. MYDRIACYL [Concomitant]
     Active Substance: TROPICAMIDE
     Indication: EYE PAIN
  10. ADEFORTE [Concomitant]
     Active Substance: .ALPHA.-TOCOPHEROL, DL-\CHOLECALCIFEROL\VITAMIN A PALMITATE
     Indication: PRODUCT USED FOR UNKNOWN INDICATION
  11. BUSCOPAN [Concomitant]
     Active Substance: BUTYLSCOPOLAMINE BROMIDE
     Indication: GASTROINTESTINAL PAIN
  12. DIPYRONE [Concomitant]
     Active Substance: DIPYRONE
     Indication: PYREXIA

REACTIONS (13)
  - Angina bullosa haemorrhagica [Recovering/Resolving]
  - Fluid retention [Recovering/Resolving]
  - Gingival swelling [Recovering/Resolving]
  - Immunodeficiency [Recovering/Resolving]
  - Performance status decreased [Recovered/Resolved]
  - Swelling face [Recovering/Resolving]
  - Hyperhidrosis [Unknown]
  - Anal haemorrhage [Recovered/Resolved]
  - Dysuria [Unknown]
  - Gingival bleeding [Recovering/Resolving]
  - Urinary tract infection [Recovered/Resolved]
  - Fatigue [Recovered/Resolved]
  - Malaise [Recovered/Resolved]

NARRATIVE: CASE EVENT DATE: 20181101
